FAERS Safety Report 24724499 (Version 1)
Quarter: 2024Q4

REPORT INFORMATION
  Report Type: Spontaneous
  Country: IT (occurrence: IT)
  Receive Date: 20241212
  Receipt Date: 20241212
  Transmission Date: 20250115
  Serious: Yes (Death, Other)
  Sender: ROCHE
  Company Number: IT-ROCHE-10000149218

PATIENT
  Age: 67 Year
  Sex: Male

DRUGS (2)
  1. MOSUNETUZUMAB [Suspect]
     Active Substance: MOSUNETUZUMAB
     Indication: Follicular lymphoma
     Route: 065
     Dates: start: 202404
  2. MOSUNETUZUMAB [Suspect]
     Active Substance: MOSUNETUZUMAB
     Route: 065
     Dates: start: 202407

REACTIONS (3)
  - Neutropenia [Unknown]
  - Pseudomonas infection [Unknown]
  - Death [Fatal]
